FAERS Safety Report 11044841 (Version 1)
Quarter: 2015Q2

REPORT INFORMATION
  Report Type: Spontaneous
  Country: US (occurrence: None)
  Receive Date: 20150415
  Receipt Date: 20150415
  Transmission Date: 20150821
  Serious: Yes (Hospitalization)
  Sender: FDA-Public Use
  Company Number: USW201504-000086

PATIENT
  Sex: Female

DRUGS (1)
  1. APOKYN [Suspect]
     Active Substance: APOMORPHINE HYDROCHLORIDE
     Indication: PARKINSON^S DISEASE
     Dosage: 0.4 ML, PRN; SITE: ROTATES
     Route: 058
     Dates: start: 20140411

REACTIONS (2)
  - Localised infection [None]
  - Staphylococcal infection [None]

NARRATIVE: CASE EVENT DATE: 20150319
